FAERS Safety Report 6979142-2 (Version None)
Quarter: 2010Q3

REPORT INFORMATION
  Report Type: 
  Country: None (occurrence: None)
  Receive Date: 20100913
  Receipt Date: 20100906
  Transmission Date: 20110219
  Serious: Yes (Hospitalization, Other)
  Sender: FDA-Public Use
  Company Number: PHHO2010IT13576

PATIENT
  Sex: Male
  Weight: 80 kg

DRUGS (1)
  1. CGP 57148B T35717+ [Suspect]
     Dosage: 400 MG, QD
     Route: 048
     Dates: start: 20100320, end: 20100825

REACTIONS (4)
  - ACUTE RESPIRATORY DISTRESS SYNDROME [None]
  - ANAEMIA [None]
  - BRONCHOPNEUMONIA [None]
  - LUNG CONSOLIDATION [None]
